FAERS Safety Report 6191558-3 (Version None)
Quarter: 2009Q2

REPORT INFORMATION
  Report Type: 
  Country: None (occurrence: None)
  Receive Date: 20090515
  Receipt Date: 20090512
  Transmission Date: 20091009
  Serious: Yes (Other)
  Sender: FDA-Public Use
  Company Number: CN-BAYER-200920600GPV

PATIENT
  Age: 65 Year
  Sex: Male

DRUGS (1)
  1. NEXAVAR [Suspect]
     Indication: LUNG ADENOCARCINOMA
     Dosage: TOTAL DAILY DOSE: 400 MG
     Route: 048
     Dates: start: 20090401

REACTIONS (2)
  - SOMNOLENCE [None]
  - TYPHOID FEVER [None]
